FAERS Safety Report 6396091-1 (Version None)
Quarter: 2009Q4

REPORT INFORMATION
  Report Type: 
  Country: None (occurrence: None)
  Receive Date: 20091009
  Receipt Date: 20091002
  Transmission Date: 20100525
  Serious: Yes (Other)
  Sender: FDA-Public Use
  Company Number: US-GENENTECH-291701

PATIENT
  Sex: Female

DRUGS (4)
  1. BLINDED BEVACIZUMAB [Suspect]
     Indication: DRUG USE FOR UNKNOWN INDICATION
     Dosage: 15 MG/KG, Q21D
     Route: 042
     Dates: start: 20090409, end: 20090730
  2. BLINDED PLACEBO [Suspect]
     Indication: DRUG USE FOR UNKNOWN INDICATION
     Dosage: 15 MG/KG, Q21D
     Route: 042
     Dates: start: 20090409, end: 20090730
  3. CARBOPLATIN [Suspect]
     Indication: DRUG USE FOR UNKNOWN INDICATION
     Dosage: 6 AUC, Q21D
     Route: 042
     Dates: start: 20090409, end: 20090730
  4. PACLITAXEL [Suspect]
     Indication: DRUG USE FOR UNKNOWN INDICATION
     Dosage: 175 MG/M2, Q21D
     Route: 042
     Dates: start: 20090409, end: 20090730

REACTIONS (1)
  - CHOLECYSTITIS [None]
